FAERS Safety Report 6691557-9 (Version None)
Quarter: 2010Q2

REPORT INFORMATION
  Report Type: 
  Country: None (occurrence: None)
  Receive Date: 20100422
  Receipt Date: 20100414
  Transmission Date: 20101027
  Serious: Yes (Hospitalization)
  Sender: FDA-Public Use
  Company Number: NL-TEVA-231170ISR

PATIENT
  Sex: Female
  Weight: 65 kg

DRUGS (4)
  1. METHOTREXATE [Suspect]
     Indication: RHEUMATOID ARTHRITIS
     Dates: start: 20010521, end: 20091126
  2. METHOTREXATE [Concomitant]
  3. ETANERCEPT [Suspect]
     Dates: start: 20010521, end: 20100105
  4. OMEPRAZOLE [Concomitant]
     Dates: start: 20080304, end: 20100105

REACTIONS (1)
  - LUNG NEOPLASM MALIGNANT [None]
